FAERS Safety Report 6936657-0 (Version None)
Quarter: 2010Q3

REPORT INFORMATION
  Report Type: 
  Country: None (occurrence: None)
  Receive Date: 20100823
  Receipt Date: 20100811
  Transmission Date: 20110219
  Serious: Yes (Life-Threatening, Hospitalization)
  Sender: FDA-Public Use
  Company Number: JP-JNJFOC-20100601361

PATIENT
  Sex: Male
  Weight: 56 kg

DRUGS (38)
  1. REMICADE [Suspect]
     Indication: POLYARTERITIS NODOSA
     Route: 042
  2. REMICADE [Suspect]
     Route: 042
  3. REMICADE [Suspect]
     Route: 042
  4. PREDNISOLONE [Suspect]
     Indication: PRODUCT USED FOR UNKNOWN INDICATION
     Route: 048
  5. PREDNISOLONE [Suspect]
     Route: 048
  6. PREDNISOLONE [Suspect]
     Route: 048
  7. PREDNISOLONE [Suspect]
     Route: 048
  8. PREDNISOLONE [Suspect]
     Route: 048
  9. PREDNISOLONE [Suspect]
     Route: 048
  10. PREDNISOLONE [Suspect]
     Route: 048
  11. PREDNISOLONE [Suspect]
     Route: 048
  12. PREDNISOLONE [Suspect]
     Route: 048
  13. PREDNISOLONE [Suspect]
     Route: 048
  14. RHEUMATREX [Suspect]
     Indication: POLYARTERITIS NODOSA
     Route: 048
  15. RHEUMATREX [Suspect]
     Route: 048
  16. RHEUMATREX [Suspect]
     Route: 048
  17. RHEUMATREX [Suspect]
     Route: 048
  18. TACROLIMUS [Suspect]
     Indication: PRODUCT USED FOR UNKNOWN INDICATION
     Route: 065
  19. CYCLOSPORINE [Suspect]
     Indication: PRODUCT USED FOR UNKNOWN INDICATION
     Route: 065
  20. CYCLOSPORINE [Suspect]
     Route: 065
  21. CYCLOPHOSPHAMIDE [Suspect]
     Indication: PRODUCT USED FOR UNKNOWN INDICATION
     Route: 042
  22. CYCLOPHOSPHAMIDE [Suspect]
     Route: 048
  23. AZATHIOPRINE [Concomitant]
     Route: 048
  24. AZATHIOPRINE [Concomitant]
     Route: 048
  25. EPADEL S [Concomitant]
     Route: 048
  26. ACTONEL [Concomitant]
     Indication: OSTEOPOROSIS
     Route: 048
  27. COTRIM [Concomitant]
     Route: 048
  28. PREDOHAN [Concomitant]
     Route: 048
  29. ADALAT CC [Concomitant]
     Route: 048
  30. LOSARTAN POTASSIUM AND HYDROCHLOROTHIAZIDE [Concomitant]
     Route: 048
  31. LANSOPRAZOLE [Concomitant]
     Route: 048
  32. WARFARIN [Concomitant]
     Route: 048
  33. MEVALOTIN [Concomitant]
     Route: 048
  34. PROCYLIN [Concomitant]
     Dosage: DOSE: 40 RG 3 TIMES PER DAY
     Route: 048
  35. METHYCOBAL [Concomitant]
     Route: 048
  36. MAGLAX [Concomitant]
     Route: 048
  37. LOXONIN [Concomitant]
     Route: 048
  38. ISODINE GARGLE [Concomitant]
     Dosage: 30 ML X 2 BOTTLES 3-4 TIMES/DAY; ROUTE: OR

REACTIONS (4)
  - ARTHRITIS [None]
  - JC VIRUS INFECTION [None]
  - PROGRESSIVE MULTIFOCAL LEUKOENCEPHALOPATHY [None]
  - STAPHYLOCOCCAL INFECTION [None]
